FAERS Safety Report 6436684-6 (Version None)
Quarter: 2009Q4

REPORT INFORMATION
  Report Type: 
  Country: None (occurrence: None)
  Receive Date: 20091111
  Receipt Date: 20091102
  Transmission Date: 20100525
  Serious: No
  Sender: FDA-Public Use
  Company Number: US-B.I. PHARMACEUTICALS,INC./RIDGEFIELD-2009-BP-12808BP

PATIENT
  Sex: Male

DRUGS (12)
  1. SPIRIVA [Suspect]
     Indication: CHRONIC OBSTRUCTIVE PULMONARY DISEASE
     Dosage: 18 MCG
     Route: 055
     Dates: start: 20060101
  2. ADVAIR DISKUS 100/50 [Suspect]
     Indication: CHRONIC OBSTRUCTIVE PULMONARY DISEASE
  3. FINASTERIDE [Concomitant]
     Indication: PROSTATOMEGALY
  4. KLOR-CON [Concomitant]
     Indication: MINERAL SUPPLEMENTATION
  5. SIMVASTATIN [Concomitant]
     Indication: BLOOD CHOLESTEROL INCREASED
  6. BYSTOLIC [Concomitant]
     Indication: ATRIAL FIBRILLATION
  7. CARDIZEM [Concomitant]
     Indication: ATRIAL FIBRILLATION
  8. BUPROPION HCL [Concomitant]
     Indication: DEPRESSION
  9. FUROSEMIDE [Concomitant]
     Indication: ATRIAL FIBRILLATION
  10. GLIPIZIDE [Concomitant]
     Indication: DIABETES MELLITUS
  11. COUMADIN [Concomitant]
     Indication: ATRIAL FIBRILLATION
  12. DIAZEPAM [Concomitant]
     Indication: DEPRESSION

REACTIONS (1)
  - DRY MOUTH [None]
